FAERS Safety Report 8943610 (Version 1)
Quarter: 2012Q4

REPORT INFORMATION
  Report Type: Report from Study
  Country: US (occurrence: US)
  Receive Date: 20121203
  Receipt Date: 20121203
  Transmission Date: 20130627
  Serious: Yes (Hospitalization)
  Sender: FDA-Public Use
  Company Number: US-CELGENEUS-ABX74-08-0395

PATIENT
  Age: 55 Year
  Sex: Female
  Weight: 89 kg

DRUGS (5)
  1. ABRAXANE [Suspect]
     Indication: METASTATIC BREAST CANCER
     Dosage: 291 Milligram
     Route: 041
     Dates: start: 20080905, end: 20081003
  2. GEMCITABINE [Suspect]
     Indication: METASTATIC BREAST CANCER
     Dosage: 2910 Milligram
     Route: 041
     Dates: start: 20080905, end: 20081003
  3. BEVACIZUMAB [Suspect]
     Indication: METASTATIC BREAST CANCER
     Dosage: 886 Milligram
     Route: 041
     Dates: start: 20080905, end: 20081003
  4. MIDAZOLAM HYDROCHLORIDE [Concomitant]
     Indication: DRUG USE FOR UNKNOWN INDICATION
     Route: 065
  5. FENTANYL CITRATE [Concomitant]
     Indication: DRUG USE FOR UNKNOWN INDICATION
     Route: 065

REACTIONS (2)
  - Sepsis [Recovered/Resolved]
  - Pleural effusion [Unknown]
